FAERS Safety Report 9483906 (Version 2)
Quarter: 2013Q3

REPORT INFORMATION
  Report Type: Spontaneous
  Country: US (occurrence: US)
  Receive Date: 20130828
  Receipt Date: 20130828
  Transmission Date: 20140515
  Serious: Yes (Other)
  Sender: FDA-Public Use
  Company Number: US-ELI_LILLY_AND_COMPANY-US201307010036

PATIENT
  Age: 52 Year
  Sex: Male
  Weight: 74.83 kg

DRUGS (1)
  1. HUMALOG LISPRO [Suspect]
     Indication: DIABETES MELLITUS
     Dosage: UNK UNK, PRN
     Route: 058

REACTIONS (4)
  - Hypoglycaemic unconsciousness [Recovered/Resolved]
  - Convulsion [Unknown]
  - Blood glucose increased [Recovered/Resolved]
  - Drug effect delayed [Recovered/Resolved]
